FAERS Safety Report 5862076-4 (Version None)
Quarter: 2008Q3

REPORT INFORMATION
  Report Type: 
  Country: None (occurrence: None)
  Receive Date: 20080827
  Receipt Date: 20080827
  Transmission Date: 20090109
  Serious: Yes (Hospitalization, Disabling, Other)
  Sender: FDA-Public Use
  Company Number: None

PATIENT
  Age: 58 Year
  Sex: Female
  Weight: 61.2356 kg

DRUGS (1)
  1. CHANTIX [Suspect]
     Indication: SMOKING CESSATION THERAPY
     Dosage: SEE IMAGE
     Route: 048
     Dates: start: 20070509, end: 20070701

REACTIONS (8)
  - ANOREXIA [None]
  - DEPRESSION [None]
  - FEELING ABNORMAL [None]
  - MOOD ALTERED [None]
  - OVERDOSE [None]
  - PARANOIA [None]
  - SOMNOLENCE [None]
  - SUICIDE ATTEMPT [None]
